FAERS Safety Report 7329603-1 (Version None)
Quarter: 2011Q1

REPORT INFORMATION
  Report Type: 
  Country: None (occurrence: None)
  Receive Date: 20110303
  Receipt Date: 20110217
  Transmission Date: 20110831
  Serious: Yes (Life-Threatening, Hospitalization, Other)
  Sender: FDA-Public Use
  Company Number: JP-CELGENEUS-087-21880-10112702

PATIENT
  Sex: Female
  Weight: 40.2 kg

DRUGS (16)
  1. PREDONINE [Concomitant]
     Indication: MULTIPLE MYELOMA
     Dosage: 5 MILLIGRAM
     Route: 048
     Dates: start: 20101012, end: 20101108
  2. CALBLOCK [Concomitant]
     Indication: HYPERTENSION
     Dosage: 16 MILLIGRAM
     Route: 048
     Dates: start: 20101012, end: 20101108
  3. SULTAMUGIN [Concomitant]
     Route: 065
     Dates: start: 20101118
  4. DEXAMETHASONE [Concomitant]
     Dosage: 40 MILLIGRAM
     Route: 051
     Dates: start: 20101019, end: 20101019
  5. FERROUS CITRATE [Concomitant]
     Dosage: 50 MILLIGRAM
     Route: 048
     Dates: start: 20101012, end: 20101108
  6. ASPIRIN [Concomitant]
     Indication: PROPHYLAXIS
     Dosage: 100 MILLIGRAM
     Route: 048
     Dates: start: 20101016, end: 20101108
  7. FLUCONAZOLE [Concomitant]
     Indication: PROPHYLAXIS
     Dosage: 100 MILLIGRAM
     Route: 048
     Dates: start: 20101012, end: 20101108
  8. DEXAMETHASONE [Concomitant]
     Indication: MULTIPLE MYELOMA
     Dosage: 40 MILLIGRAM
     Route: 051
     Dates: start: 20101012, end: 20101015
  9. DIOVAN [Concomitant]
     Indication: HYPERTENSION
     Dosage: 80 MILLIGRAM
     Route: 048
     Dates: start: 20101012, end: 20101108
  10. REVLIMID [Suspect]
     Indication: MULTIPLE MYELOMA
     Dosage: 10 MILLIGRAM
     Route: 048
     Dates: start: 20101012, end: 20101206
  11. DEXAMETHASONE [Concomitant]
     Dosage: 40 MILLIGRAM
     Route: 051
     Dates: start: 20101026, end: 20101026
  12. AMIKACIN SULFATE [Concomitant]
     Route: 058
     Dates: start: 20101118
  13. IMMUNE GLOBULIN INTRAVENOUS (HUMAN) [Concomitant]
     Route: 065
     Dates: start: 20101118
  14. MEROPENEM [Concomitant]
     Indication: SEPSIS
     Route: 065
     Dates: start: 20101120
  15. MEXITIL [Concomitant]
     Indication: ARRHYTHMIA
     Dosage: 200 MILLIGRAM
     Route: 048
     Dates: start: 20101012, end: 20101108
  16. PROTECADIN [Concomitant]
     Indication: PROPHYLAXIS
     Dosage: 20 MILLIGRAM
     Route: 048
     Dates: start: 20101012, end: 20101108

REACTIONS (5)
  - WHITE BLOOD CELL COUNT DECREASED [None]
  - THROMBOCYTOPENIA [None]
  - NEUTROPHIL COUNT DECREASED [None]
  - EPISTAXIS [None]
  - INFECTION [None]
